FAERS Safety Report 9111787 (Version 1)
Quarter: 2013Q1

REPORT INFORMATION
  Report Type: Spontaneous
  Country: US (occurrence: US)
  Receive Date: 20130219
  Receipt Date: 20130219
  Transmission Date: 20140127
  Serious: No
  Sender: FDA-Public Use
  Company Number: US-BRISTOL-MYERS SQUIBB COMPANY-16687048

PATIENT
  Age: 72 Year
  Sex: Female
  Weight: 58.96 kg

DRUGS (10)
  1. ORENCIA [Suspect]
     Indication: RHEUMATOID ARTHRITIS
     Route: 042
     Dates: start: 201204
  2. JANUVIA [Concomitant]
  3. PREDNISONE [Concomitant]
  4. DIGOXIN [Concomitant]
  5. DIOVAN [Concomitant]
  6. CARDIZEM [Concomitant]
  7. XANAX [Concomitant]
  8. FLEXERIL [Concomitant]
  9. COUMADIN [Concomitant]
  10. ACTONEL [Concomitant]

REACTIONS (2)
  - Rash macular [Unknown]
  - Pruritus [Unknown]
